FAERS Safety Report 17300075 (Version 1)
Quarter: 2020Q1

REPORT INFORMATION
  Report Type: Spontaneous
  Country: US (occurrence: US)
  Receive Date: 20200122
  Receipt Date: 20200122
  Transmission Date: 20200409
  Serious: No
  Sender: FDA-Public Use
  Company Number: US-ALLERGAN-1920962US

PATIENT
  Sex: Female
  Weight: 61.22 kg

DRUGS (1)
  1. CYCLOSPORINE UNK [Suspect]
     Active Substance: CYCLOSPORINE
     Indication: PRODUCT USED FOR UNKNOWN INDICATION
     Dosage: UNK
     Route: 047

REACTIONS (2)
  - Rash [Unknown]
  - Hypersensitivity [Unknown]
